FAERS Safety Report 6593690-9 (Version None)
Quarter: 2010Q1

REPORT INFORMATION
  Report Type: 
  Country: None (occurrence: None)
  Receive Date: 20100218
  Receipt Date: 20100218
  Transmission Date: 20100710
  Serious: Yes (Other)
  Sender: FDA-Public Use
  Company Number: None

PATIENT
  Age: 60 Year
  Sex: Female
  Weight: 74.8435 kg

DRUGS (1)
  1. SULFAMETHOXAZOLE AND TRIMETHOPRIM DOUBLE STRENGTH [Suspect]
     Indication: NASOPHARYNGITIS
     Dosage: ONE TAB TWICE DAILY MOUTH
     Route: 048
     Dates: start: 20100101, end: 20100102

REACTIONS (2)
  - PRURITUS GENERALISED [None]
  - RASH MACULO-PAPULAR [None]
